FAERS Safety Report 12112410 (Version 1)
Quarter: 2016Q1

REPORT INFORMATION
  Report Type: Other
  Country: US (occurrence: US)
  Receive Date: 20160225
  Receipt Date: 20160225
  Transmission Date: 20160526
  Serious: Yes (Hospitalization)
  Sender: FDA-Public Use
  Company Number: US-ACORDA-ACO_115622_2015

PATIENT
  Age: 62 Year
  Sex: Male

DRUGS (1)
  1. AMPYRA [Suspect]
     Active Substance: DALFAMPRIDINE
     Indication: MULTIPLE SCLEROSIS
     Dosage: 10 MG, BID
     Route: 048
     Dates: start: 20140401, end: 20150827

REACTIONS (8)
  - Asthenopia [Recovered/Resolved]
  - Drug ineffective [Unknown]
  - Hypoaesthesia [Unknown]
  - Muscular weakness [Unknown]
  - Adverse event [Recovered/Resolved]
  - Multiple sclerosis [Not Recovered/Not Resolved]
  - Dizziness [Recovered/Resolved]
  - Walking aid user [Not Recovered/Not Resolved]

NARRATIVE: CASE EVENT DATE: 20150612
